FAERS Safety Report 6333466-0 (Version None)
Quarter: 2009Q3

REPORT INFORMATION
  Report Type: 
  Country: None (occurrence: None)
  Receive Date: 20090828
  Receipt Date: 20090820
  Transmission Date: 20100115
  Serious: Yes (Other)
  Sender: FDA-Public Use
  Company Number: PHHY2009NL35502

PATIENT
  Age: 39 Year
  Sex: Female

DRUGS (1)
  1. GLEEVEC [Suspect]

REACTIONS (2)
  - NAUSEA [None]
  - TRANSPLANT [None]
